FAERS Safety Report 7268238-6 (Version None)
Quarter: 2011Q1

REPORT INFORMATION
  Report Type: 
  Country: None (occurrence: None)
  Receive Date: 20110201
  Receipt Date: 20110127
  Transmission Date: 20110831
  Serious: Yes (Other)
  Sender: FDA-Public Use
  Company Number: PHHO2011SE00972

PATIENT
  Sex: Female

DRUGS (5)
  1. PREDNISOLONE [Suspect]
     Dosage: 5 MG, QD
     Dates: start: 20090313
  2. NO TREATMENT RECEIVED [Suspect]
     Dosage: UNK
  3. MYFORTIC [Suspect]
     Indication: RENAL TRANSPLANT
     Dosage: 540 MG + 360 MG
     Route: 048
     Dates: start: 20090313, end: 20100927
  4. SIMULECT [Suspect]
     Indication: RENAL TRANSPLANT
     Dosage: 20 MG, UNK
     Dates: start: 20090312, end: 20090316
  5. SANDIMMUNE [Suspect]
     Indication: RENAL TRANSPLANT
     Dosage: 50 MG AND 75 MG
     Route: 048
     Dates: start: 20090313

REACTIONS (2)
  - SQUAMOUS CELL CARCINOMA [None]
  - SKIN LESION EXCISION [None]
